FAERS Safety Report 6943429-X (Version None)
Quarter: 2010Q3

REPORT INFORMATION
  Report Type: 
  Country: None (occurrence: None)
  Receive Date: 20100823
  Receipt Date: 20100812
  Transmission Date: 20110219
  Serious: Yes (Life-Threatening)
  Sender: FDA-Public Use
  Company Number: 669161

PATIENT
  Age: 52 Year
  Sex: Female
  Weight: 61.3 kg

DRUGS (2)
  1. OXALIPLATIN [Suspect]
     Indication: COLORECTAL CANCER
     Dosage: 140 MG MILLIGRAM(S), INTRAVENOUS
     Route: 042
     Dates: start: 20100721, end: 20100721
  2. ACETAMINOPHEN AND CODEINE PHOSPHATE [Concomitant]

REACTIONS (2)
  - ANAPHYLACTOID REACTION [None]
  - DYSGEUSIA [None]
